FAERS Safety Report 6974649-6 (Version None)
Quarter: 2010Q3

REPORT INFORMATION
  Report Type: 
  Country: None (occurrence: None)
  Receive Date: 20100909
  Receipt Date: 20081202
  Transmission Date: 20110219
  Serious: No
  Sender: FDA-Public Use
  Company Number: US-WYE-H07047108

PATIENT
  Sex: Female
  Weight: 68.1 kg

DRUGS (3)
  1. PRISTIQ [Suspect]
     Indication: DEPRESSION
     Route: 048
     Dates: start: 20081112, end: 20081129
  2. PRISTIQ [Suspect]
     Indication: NIGHT SWEATS
  3. DIOVAN [Concomitant]

REACTIONS (7)
  - ANXIETY [None]
  - DIARRHOEA [None]
  - DYSPHONIA [None]
  - FATIGUE [None]
  - HEADACHE [None]
  - NAUSEA [None]
  - TREMOR [None]
